FAERS Safety Report 9247412 (Version 5)
Quarter: 2015Q1

REPORT INFORMATION
  Report Type: Spontaneous
  Country: US (occurrence: US)
  Receive Date: 20130423
  Receipt Date: 20150102
  Transmission Date: 20150721
  Serious: Yes (Hospitalization, Other)
  Sender: FDA-Public Use
  Company Number: US-BAYER-2013-049513

PATIENT
  Age: 30 Year
  Sex: Female
  Weight: 86.17 kg

DRUGS (3)
  1. IBUPROFEN. [Concomitant]
     Active Substance: IBUPROFEN
     Indication: PAIN
  2. MIRENA [Suspect]
     Active Substance: LEVONORGESTREL
     Indication: CONTRACEPTION
     Dosage: 20 MCG/24HR, CONT
     Route: 015
     Dates: start: 201110, end: 20120831
  3. MIRENA [Suspect]
     Active Substance: LEVONORGESTREL
     Indication: CONTRACEPTION
     Dosage: UNK

REACTIONS (12)
  - Injury [None]
  - Nerve injury [None]
  - Medical device pain [None]
  - Emotional distress [None]
  - Psychogenic pain disorder [None]
  - Device dislocation [None]
  - Pain [None]
  - Dyspareunia [None]
  - Medical device discomfort [None]
  - Off label use [None]
  - Uterine perforation [None]
  - Anhedonia [None]

NARRATIVE: CASE EVENT DATE: 201110
